FAERS Safety Report 8950863 (Version 1)
Quarter: 2012Q4

REPORT INFORMATION
  Report Type: Spontaneous
  Country: US (occurrence: None)
  Receive Date: 20121204
  Receipt Date: 20121204
  Transmission Date: 20130627
  Serious: No
  Sender: FDA-Public Use
  Company Number: None

PATIENT
  Age: 85 Year
  Sex: Male
  Weight: 83.9 kg

DRUGS (1)
  1. FUROSEMIDE [Suspect]
     Dosage: 20 MG   ONCE   IV
     Route: 042
     Dates: start: 20121106, end: 20121106

REACTIONS (4)
  - Cough [None]
  - Wheezing [None]
  - Hyperhidrosis [None]
  - Dyspnoea [None]
